FAERS Safety Report 15849712 (Version 1)
Quarter: 2019Q1

REPORT INFORMATION
  Report Type: Spontaneous
  Country: IT (occurrence: IT)
  Receive Date: 20190121
  Receipt Date: 20190121
  Transmission Date: 20190417
  Serious: Yes (Hospitalization)
  Sender: FDA-Public Use
  Company Number: IT-MYLANLABS-2019M1005174

PATIENT
  Age: 75 Year
  Sex: Male

DRUGS (4)
  1. MYLAN-ATORVASTATIN [Suspect]
     Active Substance: ATORVASTATIN
     Indication: HYPERCHOLESTEROLAEMIA
     Dosage: UNK
     Route: 048
     Dates: start: 20140616, end: 201804
  2. BISOPROLOLO MYLAN [Concomitant]
     Dosage: UNK
     Route: 048
  3. LOSARTAN MYLAN [Concomitant]
     Active Substance: LOSARTAN
     Dosage: UNK
     Route: 048
  4. TICLOPIDINE [Concomitant]
     Active Substance: TICLOPIDINE
     Dosage: UNK
     Route: 048

REACTIONS (1)
  - Henoch-Schonlein purpura [Recovered/Resolved]

NARRATIVE: CASE EVENT DATE: 201703
